FAERS Safety Report 5615936-3 (Version None)
Quarter: 2008Q1

REPORT INFORMATION
  Report Type: 
  Country: None (occurrence: None)
  Receive Date: 20080206
  Receipt Date: 20080125
  Transmission Date: 20080703
  Serious: Yes (Disabling)
  Sender: FDA-Public Use
  Company Number: US-PFIZER INC-2006002711

PATIENT
  Sex: Male
  Weight: 108.9 kg

DRUGS (7)
  1. LYRICA [Suspect]
     Indication: PARAESTHESIA
     Dates: start: 20051215, end: 20051220
  2. LYRICA [Suspect]
     Indication: NEUROPATHY PERIPHERAL
  3. BENICAR [Concomitant]
     Dosage: TEXT:UNKNOWN-FREQ:UNKNOWN
     Route: 065
  4. AVANDAMET [Concomitant]
     Dosage: TEXT:UNKNOWN-FREQ:UNKNOWN
     Route: 065
  5. VYTORIN [Concomitant]
     Dosage: TEXT:UNKNOWN-FREQ:UNKNOWN
     Route: 065
  6. CELEBREX [Concomitant]
     Dosage: TEXT:UNKNOWN-FREQ:UNKNOWN
     Route: 065
  7. ASPIRIN [Concomitant]
     Route: 065

REACTIONS (10)
  - ACTIVITIES OF DAILY LIVING IMPAIRED [None]
  - COLOUR VISION TESTS ABNORMAL [None]
  - DIPLOPIA [None]
  - DIZZINESS [None]
  - DYSSTASIA [None]
  - EXTRAOCULAR MUSCLE DISORDER [None]
  - EYE MOVEMENT DISORDER [None]
  - IMPAIRED DRIVING ABILITY [None]
  - VISUAL ACUITY REDUCED [None]
  - VITH NERVE PARALYSIS [None]
